FAERS Safety Report 4471944-X (Version None)
Quarter: 2004Q4

REPORT INFORMATION
  Report Type: 
  Country: None (occurrence: None)
  Receive Date: 20041007
  Receipt Date: 20040921
  Transmission Date: 20050328
  Serious: Yes (Hospitalization)
  Sender: FDA-Public Use
  Company Number: 2004-BP-07359AU

PATIENT
  Age: 56 Year
  Sex: Female

DRUGS (5)
  1. SPIRIVA [Suspect]
     Dosage: 36 MCG (18 MCG, 1 TWICE DAILY), IH
     Route: 055
  2. SALBUTAMOL (SALBUTAMOL) [Concomitant]
  3. ALENDRONATE SODIUM [Concomitant]
  4. PAROXETINE HCL [Concomitant]
  5. SERETIDE [Concomitant]

REACTIONS (2)
  - CONSTIPATION [None]
  - PERITONITIS [None]
